FAERS Safety Report 7003590-8 (Version None)
Quarter: 2010Q3

REPORT INFORMATION
  Report Type: 
  Country: None (occurrence: None)
  Receive Date: 20100916
  Receipt Date: 20100909
  Transmission Date: 20110219
  Serious: Yes (Death)
  Sender: FDA-Public Use
  Company Number: 2010-3123

PATIENT
  Sex: Female

DRUGS (1)
  1. APO-GO AMPOULES(APO-GO)(APOMORPHINE HYDROCHLORIDE)(APOMORPHINE HYDROCH [Suspect]
     Indication: PRODUCT USED FOR UNKNOWN INDICATION

REACTIONS (1)
  - DEATH [None]
